FAERS Safety Report 6463092-4 (Version None)
Quarter: 2009Q4

REPORT INFORMATION
  Report Type: 
  Country: None (occurrence: None)
  Receive Date: 20091123
  Receipt Date: 20091112
  Transmission Date: 20100525
  Serious: Yes (Life-Threatening, Hospitalization)
  Sender: FDA-Public Use
  Company Number: 09035RX

PATIENT
  Sex: Female

DRUGS (1)
  1. TINDAMAX [Suspect]

REACTIONS (1)
  - ANAPHYLACTIC SHOCK [None]
